FAERS Safety Report 10553929 (Version 3)
Quarter: 2015Q1

REPORT INFORMATION
  Report Type: Spontaneous
  Country: US (occurrence: US)
  Receive Date: 20141030
  Receipt Date: 20150330
  Transmission Date: 20150720
  Serious: Yes (Hospitalization, Other)
  Sender: FDA-Public Use
  Company Number: US-PFIZER INC-2014190905

PATIENT
  Age: 77 Year
  Sex: Female

DRUGS (20)
  1. LYRICA [Suspect]
     Active Substance: PREGABALIN
     Indication: NEUROPATHY PERIPHERAL
     Dosage: 75 MG, 1X/DAY
     Dates: start: 201406
  2. NORVASC [Suspect]
     Active Substance: AMLODIPINE BESYLATE
     Indication: HYPERTENSION
     Dosage: 20 MG, UNK
     Dates: end: 201501
  3. XANAX [Suspect]
     Active Substance: ALPRAZOLAM
     Indication: ANXIETY
     Dosage: 0.25 MG X2, DAILY
     Dates: start: 201411
  4. ELAVIL [Concomitant]
     Active Substance: AMITRIPTYLINE HYDROCHLORIDE
     Dosage: UNK
  5. NITRO [Concomitant]
     Active Substance: NITROGLYCERIN
     Dosage: 4 MG, AS NEEDED
  6. PROVENTIL [Concomitant]
     Active Substance: ALBUTEROL
     Dosage: UNK
  7. HYDROCODONE [Concomitant]
     Active Substance: HYDROCODONE
     Dosage: 500/325 MG, AS NEEDED
  8. LOMOTIL [Concomitant]
     Active Substance: ATROPINE SULFATE\DIPHENOXYLATE HYDROCHLORIDE
     Dosage: 2.5 MG, AS NEEDED
  9. COREG [Concomitant]
     Active Substance: CARVEDILOL
     Dosage: UNK
  10. TRAMADOL [Concomitant]
     Active Substance: TRAMADOL
     Dosage: UNK
  11. TUMS [Concomitant]
     Active Substance: CALCIUM CARBONATE
     Dosage: UNK, AS NEEDED
  12. TYLENOL [Concomitant]
     Active Substance: ACETAMINOPHEN
     Dosage: UNK, AS NEEDED
  13. PROAIR HFA [Concomitant]
     Active Substance: ALBUTEROL SULFATE
     Dosage: 90 ?G, DAILY
  14. HYDROXYZINE [Concomitant]
     Active Substance: HYDROXYZINE\HYDROXYZINE HYDROCHLORIDE
     Dosage: 10 MG, AS NEEDED
  15. CLONIDINE. [Concomitant]
     Active Substance: CLONIDINE
     Dosage: 0.2 MG X 3, DAILY
  16. OXYGEN. [Concomitant]
     Active Substance: OXYGEN
     Dosage: 3 L, DAILY
  17. PAPAYA ENZYME [Concomitant]
     Dosage: UNK, AS NEEDED
  18. SYNTHROID [Concomitant]
     Active Substance: LEVOTHYROXINE SODIUM
     Dosage: 0.150 MG, DAILY
  19. VITAMIN D3 [Concomitant]
     Active Substance: CHOLECALCIFEROL
     Dosage: 2000 IU, DAILY
  20. TUDORZA PRESSAIR [Concomitant]
     Active Substance: ACLIDINIUM BROMIDE
     Dosage: (400 MCG X 2), DAILY

REACTIONS (17)
  - Cardiac failure congestive [Not Recovered/Not Resolved]
  - Dyspnoea [Unknown]
  - Fatigue [Unknown]
  - Stomatitis [Unknown]
  - Vision blurred [Unknown]
  - Chronic kidney disease [Not Recovered/Not Resolved]
  - Burning sensation [Not Recovered/Not Resolved]
  - Dialysis related complication [Unknown]
  - Headache [Unknown]
  - Throat tightness [Unknown]
  - Disease progression [Not Recovered/Not Resolved]
  - Coronary artery occlusion [Unknown]
  - Pruritus [Unknown]
  - Diarrhoea [Unknown]
  - Pain in extremity [Not Recovered/Not Resolved]
  - Dizziness [Unknown]
  - Disease progression [Unknown]

NARRATIVE: CASE EVENT DATE: 201406
